FAERS Safety Report 25606097 (Version 1)
Quarter: 2025Q3

REPORT INFORMATION
  Report Type: Spontaneous
  Country: US (occurrence: US)
  Receive Date: 20250725
  Receipt Date: 20250725
  Transmission Date: 20251020
  Serious: No
  Sender: BAUSCH AND LOMB
  Company Number: US-BAUSCH-BH-2025-014939

PATIENT
  Age: 60 Year
  Sex: Male

DRUGS (2)
  1. JUBLIA [Suspect]
     Active Substance: EFINACONAZOLE
     Indication: Onychomycosis
     Dosage: ONCE DAILY EVERY MORNING TO SIX TOENAILS, TWO BIG TOES, AND FOUR LITTLE ONES
     Route: 061
     Dates: start: 20240228, end: 20250225
  2. JANUVIA [Concomitant]
     Active Substance: SITAGLIPTIN PHOSPHATE
     Indication: Diabetes mellitus

REACTIONS (3)
  - Drug ineffective [Unknown]
  - Insurance issue [Unknown]
  - Product use issue [Unknown]
